FAERS Safety Report 19498237 (Version 1)
Quarter: 2021Q3

REPORT INFORMATION
  Report Type: Spontaneous
  Country: FR (occurrence: FR)
  Receive Date: 20210706
  Receipt Date: 20210706
  Transmission Date: 20211014
  Serious: Yes (Other)
  Sender: FDA-Public Use
  Company Number: FR-PFIZER INC-2021750488

PATIENT
  Age: 66 Year
  Sex: Male
  Weight: 83 kg

DRUGS (15)
  1. KARDEGIC [Concomitant]
     Active Substance: ASPIRIN DL-LYSINE
  2. AMIODARONE ARROW [Concomitant]
     Active Substance: AMIODARONE
  3. PERINDOPRIL ARROW [Concomitant]
     Active Substance: PERINDOPRIL
  4. ZYMAD [Concomitant]
     Active Substance: CHOLECALCIFEROL
  5. NOVORAPID [Concomitant]
     Active Substance: INSULIN ASPART
  6. INLYTA [Suspect]
     Active Substance: AXITINIB
     Indication: RENAL CANCER
     Dosage: 4 MG, 1X/DAY
     Route: 048
     Dates: start: 20171212, end: 20210607
  7. LEVOTHYROX [Concomitant]
     Active Substance: LEVOTHYROXINE
  8. CALCIDOSE VITAMINE D [Concomitant]
     Active Substance: CALCIUM\CHOLECALCIFEROL
  9. ATORVASTATINE ARROW [Concomitant]
     Active Substance: ATORVASTATIN
  10. BISOPROLOL QUIVER [Concomitant]
     Active Substance: BISOPROLOL FUMARATE
  11. CLOPIDOGREL [Concomitant]
     Active Substance: CLOPIDOGREL BISULFATE
  12. SUTENT [Suspect]
     Active Substance: SUNITINIB MALATE
     Indication: RENAL CANCER
     Dosage: 50 MG, 1X/DAY
     Route: 048
     Dates: start: 20080318, end: 20090701
  13. AFINITOR [Suspect]
     Active Substance: EVEROLIMUS
     Indication: RENAL CANCER
     Dosage: 10 MG, 1X/DAY
     Route: 048
     Dates: start: 20130617, end: 20150209
  14. LOVENOX [Concomitant]
     Active Substance: ENOXAPARIN SODIUM
  15. ABASAGLAR [Concomitant]
     Active Substance: INSULIN GLARGINE

REACTIONS (1)
  - Osteonecrosis of jaw [Not Recovered/Not Resolved]

NARRATIVE: CASE EVENT DATE: 20210529
